FAERS Safety Report 4325566-1 (Version None)
Quarter: 2004Q1

REPORT INFORMATION
  Report Type: 
  Country: None (occurrence: None)
  Receive Date: 20040324
  Receipt Date: 20040311
  Transmission Date: 20041129
  Serious: Yes (Other)
  Sender: FDA-Public Use
  Company Number: 205231

PATIENT
  Age: 57 Year
  Sex: Male

DRUGS (4)
  1. RITUXAN [Suspect]
     Indication: DIFFUSE LARGE B-CELL LYMPHOMA
     Dosage: INTRAVENOUS
     Route: 042
  2. IFOSFAMIDE [Suspect]
     Indication: DIFFUSE LARGE B-CELL LYMPHOMA
  3. ETOPOSIDE [Suspect]
     Indication: DIFFUSE LARGE B-CELL LYMPHOMA
  4. CARBOPLATIN [Suspect]
     Dosage: DIFFUSE LARGE B-CELL LYMPHOMA

REACTIONS (4)
  - GASTRITIS EROSIVE [None]
  - PSEUDOMONAL SEPSIS [None]
  - TOXIC EPIDERMAL NECROLYSIS [None]
  - UPPER GASTROINTESTINAL HAEMORRHAGE [None]
